FAERS Safety Report 7236357-6 (Version None)
Quarter: 2011Q1

REPORT INFORMATION
  Report Type: 
  Country: None (occurrence: None)
  Receive Date: 20110120
  Receipt Date: 20101220
  Transmission Date: 20110831
  Serious: Yes (Other)
  Sender: FDA-Public Use
  Company Number: PHHY2010GB87650

PATIENT

DRUGS (4)
  1. SIMVASTATIN [Suspect]
  2. ROSUVASTATIN [Concomitant]
  3. ATORVASTATIN CALCIUM [Suspect]
  4. PRAVASTATIN [Concomitant]

REACTIONS (2)
  - APOLIPOPROTEIN A-I DECREASED [None]
  - HIGH DENSITY LIPOPROTEIN DECREASED [None]
